FAERS Safety Report 16400587 (Version 1)
Quarter: 2019Q2

REPORT INFORMATION
  Report Type: Spontaneous
  Country: US (occurrence: US)
  Receive Date: 20190606
  Receipt Date: 20190606
  Transmission Date: 20190711
  Serious: Yes (Hospitalization, Other)
  Sender: FDA-Public Use
  Company Number: US-JNJFOC-20190538596

PATIENT
  Age: 72 Year
  Sex: Female

DRUGS (1)
  1. INVOKANA [Suspect]
     Active Substance: CANAGLIFLOZIN
     Indication: TYPE 2 DIABETES MELLITUS
     Route: 048

REACTIONS (5)
  - Pulmonary sarcoidosis [Unknown]
  - Hypercalcaemia [Recovering/Resolving]
  - Renal tubular necrosis [Recovering/Resolving]
  - Anaemia [Unknown]
  - Acute kidney injury [Recovering/Resolving]
